FAERS Safety Report 20005853 (Version 1)
Quarter: 2021Q4

REPORT INFORMATION
  Report Type: Spontaneous
  Country: US (occurrence: US)
  Receive Date: 20211028
  Receipt Date: 20211028
  Transmission Date: 20220304
  Serious: No
  Sender: FDA-Public Use
  Company Number: None

PATIENT
  Age: 28 Year
  Sex: Male
  Weight: 67.13 kg

DRUGS (2)
  1. HIZENTRA [Suspect]
     Active Substance: HUMAN IMMUNOGLOBULIN G
     Indication: Immune system disorder
     Dosage: ?          OTHER FREQUENCY:WEEKLY (3X/MONTH);
     Route: 058
     Dates: start: 20211021, end: 20211021
  2. HIZENTRA [Concomitant]
     Active Substance: HUMAN IMMUNOGLOBULIN G
     Dates: start: 20211021, end: 20211021

REACTIONS (4)
  - Recalled product administered [None]
  - Product quality issue [None]
  - Injection site irritation [None]
  - Injection site swelling [None]

NARRATIVE: CASE EVENT DATE: 20211021
